FAERS Safety Report 21455920 (Version 1)
Quarter: 2022Q4

REPORT INFORMATION
  Report Type: Spontaneous
  Country: TR (occurrence: TR)
  Receive Date: 20221014
  Receipt Date: 20221014
  Transmission Date: 20230113
  Serious: Yes (Life-Threatening, Hospitalization, Other)
  Sender: FDA-Public Use
  Company Number: TR-MACLEODS PHARMACEUTICALS US LTD-MAC2022037752

PATIENT

DRUGS (4)
  1. CLOPIDOGREL [Suspect]
     Active Substance: CLOPIDOGREL BISULFATE
     Indication: Product used for unknown indication
     Dosage: 75 MILLIGRAM, QD
     Route: 065
  2. ATORVASTATIN [Concomitant]
     Active Substance: ATORVASTATIN
     Indication: Product used for unknown indication
     Dosage: 20 MILLIGRAM, QD
     Route: 065
  3. ASPIRIN [Concomitant]
     Active Substance: ASPIRIN
     Indication: Product used for unknown indication
     Dosage: 100 MILLIGRAM, QD
     Route: 065
  4. PRILOCAINE HYDROCHLORIDE [Concomitant]
     Active Substance: PRILOCAINE HYDROCHLORIDE
     Indication: Local anaesthesia
     Dosage: 200 MILLIGRAM
     Route: 065

REACTIONS (4)
  - Non-cardiogenic pulmonary oedema [Recovered/Resolved]
  - Type III immune complex mediated reaction [Recovered/Resolved]
  - Haemoptysis [Recovered/Resolved]
  - Interstitial lung disease [Recovered/Resolved]
